FAERS Safety Report 7226064-8 (Version None)
Quarter: 2011Q1

REPORT INFORMATION
  Report Type: 
  Country: None (occurrence: None)
  Receive Date: 20110113
  Receipt Date: 20110111
  Transmission Date: 20110831
  Serious: Yes (Hospitalization, Other)
  Sender: FDA-Public Use
  Company Number: US-MERCK-1011USA00039

PATIENT
  Age: 72 Year
  Sex: Female

DRUGS (15)
  1. JANUVIA [Suspect]
     Indication: DIABETES MELLITUS
     Route: 048
     Dates: start: 20050101, end: 20090101
  2. SYNTHROID [Concomitant]
     Route: 065
  3. METOPROLOL [Concomitant]
     Route: 065
  4. COUMADIN [Concomitant]
     Route: 065
  5. LASIX [Concomitant]
     Route: 065
  6. LANOXIN [Concomitant]
     Route: 065
  7. GLYBURIDE [Concomitant]
     Route: 065
  8. DIGOXIN [Concomitant]
     Route: 065
  9. PROTONIX [Concomitant]
     Route: 065
  10. NEXIUM [Concomitant]
     Route: 065
  11. VICODIN [Concomitant]
     Route: 065
  12. POTASSIUM (UNSPECIFIED) [Concomitant]
     Route: 065
  13. CYMBALTA [Concomitant]
     Route: 065
  14. NORVASC [Concomitant]
     Route: 065
  15. DIOVAN [Concomitant]
     Route: 065

REACTIONS (3)
  - DIABETIC NEUROPATHY [None]
  - PANCREATITIS [None]
  - CARDIAC FAILURE CONGESTIVE [None]
